FAERS Safety Report 15601587 (Version 6)
Quarter: 2019Q1

REPORT INFORMATION
  Report Type: Spontaneous
  Country: CZ (occurrence: CZ)
  Receive Date: 20181109
  Receipt Date: 20190204
  Transmission Date: 20190417
  Serious: Yes (Death, Other)
  Sender: FDA-Public Use
  Company Number: PHHY2018CZ147600

PATIENT
  Age: 36 Year
  Sex: Male

DRUGS (4)
  1. CARBOPLATIN. [Suspect]
     Active Substance: CARBOPLATIN
     Indication: NON-SMALL CELL LUNG CANCER
     Route: 042
  2. NAVELBINE [Suspect]
     Active Substance: VINORELBINE TARTRATE
     Indication: SQUAMOUS CELL CARCINOMA OF LUNG
     Dosage: 60 MG/M2, (ON DAYS 1, 8 AND 15)
     Route: 048
     Dates: start: 201702, end: 201706
  3. CARBOPLATIN. [Suspect]
     Active Substance: CARBOPLATIN
     Indication: LUNG NEOPLASM MALIGNANT
  4. DOCETAXEL. [Suspect]
     Active Substance: DOCETAXEL
     Indication: NON-SMALL CELL LUNG CANCER
     Dosage: 80 MG/M2, Q3W
     Route: 042
     Dates: start: 201709, end: 201709

REACTIONS (10)
  - Disease progression [Fatal]
  - Death [Fatal]
  - Malignant neoplasm progression [Fatal]
  - Superior vena cava syndrome [Unknown]
  - Swelling [Unknown]
  - Subclavian vein thrombosis [Unknown]
  - Back pain [Unknown]
  - Neutropenia [Unknown]
  - Dysphagia [Unknown]
  - Non-small cell lung cancer [Fatal]

NARRATIVE: CASE EVENT DATE: 201709
